FAERS Safety Report 4359857-5 (Version None)
Quarter: 2004Q2

REPORT INFORMATION
  Report Type: 
  Country: None (occurrence: None)
  Receive Date: 20040517
  Receipt Date: 20040506
  Transmission Date: 20050107
  Serious: Yes (Hospitalization)
  Sender: FDA-Public Use
  Company Number: 2004CG00787

PATIENT
  Age: 39 Year
  Sex: Female

DRUGS (4)
  1. NEXIUM [Suspect]
     Indication: PROPHYLAXIS AGAINST GASTROINTESTINAL ULCER
     Dosage: 1 DF DAILY PO
     Route: 048
     Dates: start: 20040308, end: 20040309
  2. LEVOTHYROXINE SODIUM [Concomitant]
  3. SOLU-MEDROL [Concomitant]
  4. AUGMENTIN [Concomitant]

REACTIONS (6)
  - DERMATITIS BULLOUS [None]
  - DYSPHAGIA [None]
  - EYELID OEDEMA [None]
  - LOCALISED OEDEMA [None]
  - SKIN DESQUAMATION [None]
  - SKIN LESION [None]
